FAERS Safety Report 7505946-3 (Version None)
Quarter: 2011Q2

REPORT INFORMATION
  Report Type: 
  Country: None (occurrence: None)
  Receive Date: 20110526
  Receipt Date: 20110520
  Transmission Date: 20111010
  Serious: Yes (Other)
  Sender: FDA-Public Use
  Company Number: CO-ROCHE-744521

PATIENT
  Sex: Male

DRUGS (2)
  1. MIRCERA [Suspect]
     Route: 058
  2. MIRCERA [Suspect]
     Route: 058
     Dates: start: 20100510

REACTIONS (2)
  - ASTHENIA [None]
  - HYPOGLYCAEMIA [None]
